FAERS Safety Report 8134456-8 (Version None)
Quarter: 2012Q1

REPORT INFORMATION
  Report Type: 
  Country: None (occurrence: None)
  Receive Date: 20120214
  Receipt Date: 20120214
  Transmission Date: 20120608
  Serious: Yes (Hospitalization)
  Sender: FDA-Public Use
  Company Number: None

PATIENT
  Age: 59 Year
  Sex: Male
  Weight: 79.3 kg

DRUGS (2)
  1. PEGINTERFERON ALFA-2A [Suspect]
     Indication: HEPATITIS C
     Dosage: 180 MCG / -400MG QAM+600MG QPM
     Route: 050
     Dates: start: 20110806, end: 20111101
  2. TELAPREVIR [Concomitant]
     Indication: HEPATITIS C
     Dosage: UNKNOWN
     Route: 048
     Dates: start: 20110806, end: 20111027

REACTIONS (5)
  - DYSPNOEA [None]
  - SKIN LESION [None]
  - RASH [None]
  - PYREXIA [None]
  - CHILLS [None]
